FAERS Safety Report 7780740-7 (Version None)
Quarter: 2011Q3

REPORT INFORMATION
  Report Type: 
  Country: None (occurrence: None)
  Receive Date: 20110927
  Receipt Date: 20110628
  Transmission Date: 20111222
  Serious: No
  Sender: FDA-Public Use
  Company Number: US-BRISTOL-MYERS SQUIBB COMPANY-15859291

PATIENT
  Age: 63 Year
  Sex: Female

DRUGS (4)
  1. PRILOSEC [Concomitant]
  2. KLOR-CON [Concomitant]
  3. AVAPRO [Suspect]
     Dosage: AVAPRO START DATE= 3 YEARS.
  4. ATENOLOL [Concomitant]

REACTIONS (1)
  - PARAESTHESIA [None]
